FAERS Safety Report 21165901 (Version 2)
Quarter: 2022Q3

REPORT INFORMATION
  Report Type: Spontaneous
  Country: JP (occurrence: JP)
  Receive Date: 20220803
  Receipt Date: 20220825
  Transmission Date: 20221027
  Serious: Yes (Hospitalization, Other)
  Sender: FDA-Public Use
  Company Number: JP-Accord-271638

PATIENT
  Age: 78 Year
  Sex: Male

DRUGS (5)
  1. DILTIAZEM [Interacting]
     Active Substance: DILTIAZEM
     Indication: Prinzmetal angina
  2. AMLODIPINE [Suspect]
     Active Substance: AMLODIPINE BESYLATE
     Indication: Prinzmetal angina
     Dosage: 5 MG PER DAY
  3. NIFEDIPINE [Interacting]
     Active Substance: NIFEDIPINE
     Indication: Prinzmetal angina
  4. NITROGLYCERIN [Concomitant]
     Active Substance: NITROGLYCERIN
     Indication: Prinzmetal angina
  5. NIFEDIPINE [Interacting]
     Active Substance: NIFEDIPINE
     Indication: Prinzmetal angina

REACTIONS (2)
  - Drug interaction [Unknown]
  - Oedema peripheral [Recovered/Resolved]
